FAERS Safety Report 10019241 (Version 1)
Quarter: 2014Q1

REPORT INFORMATION
  Report Type: Spontaneous
  Country: CN (occurrence: CN)
  Receive Date: 20140318
  Receipt Date: 20140318
  Transmission Date: 20141002
  Serious: Yes (Life-Threatening)
  Sender: FDA-Public Use
  Company Number: CN-SA-2014SA031214

PATIENT
  Sex: Female

DRUGS (4)
  1. DOCETAXEL [Suspect]
     Indication: BREAST CANCER
     Route: 041
     Dates: start: 20140227, end: 20140227
  2. AMIFOSTINE [Suspect]
     Indication: PROPHYLAXIS
     Route: 041
     Dates: start: 20140227, end: 20140227
  3. CIMETIDINE [Suspect]
     Indication: ALLERGY PROPHYLAXIS
     Route: 042
     Dates: start: 20140227, end: 20140227
  4. CYCLOPHOSPHAMIDE [Concomitant]
     Indication: BREAST CANCER
     Route: 041
     Dates: start: 20140227, end: 20140227

REACTIONS (3)
  - Delirium [Recovered/Resolved]
  - Coma [Recovered/Resolved]
  - Somnolence [Recovered/Resolved]
